FAERS Safety Report 12123957 (Version 1)
Quarter: 2016Q1

REPORT INFORMATION
  Report Type: Spontaneous
  Country: US (occurrence: US)
  Receive Date: 20160229
  Receipt Date: 20160229
  Transmission Date: 20160526
  Serious: No
  Sender: FDA-Public Use
  Company Number: US-PFIZER INC-2016092048

PATIENT
  Age: 65 Year
  Sex: Female

DRUGS (1)
  1. SUTENT [Suspect]
     Active Substance: SUNITINIB MALATE
     Indication: RENAL CELL CARCINOMA
     Dosage: 25 MG, CYCLIC (1 PO X 28 DAYS AND 14 DAYS OFF)
     Route: 048

REACTIONS (3)
  - Oropharyngeal pain [Unknown]
  - Oral pain [Unknown]
  - Pain in extremity [Unknown]
